FAERS Safety Report 15116656 (Version 2)
Quarter: 2018Q3

REPORT INFORMATION
  Report Type: Spontaneous
  Country: JP (occurrence: JP)
  Receive Date: 20180706
  Receipt Date: 20180712
  Transmission Date: 20181010
  Serious: No
  Sender: FDA-Public Use
  Company Number: JP-JNJFOC-20180700559

PATIENT
  Age: 5 Decade
  Sex: Male

DRUGS (6)
  1. TERNELIN [Concomitant]
     Active Substance: TIZANIDINE
     Route: 048
  2. THEOPHYLLINE [Concomitant]
     Active Substance: THEOPHYLLINE ANHYDROUS
     Route: 065
  3. TRAMADOL HYDROCHLORIDE AND ACETAMINOPHEN [Suspect]
     Active Substance: ACETAMINOPHEN\TRAMADOL HYDROCHLORIDE
     Indication: PAIN
     Route: 048
     Dates: end: 20180625
  4. MUCOSTA [Concomitant]
     Active Substance: REBAMIPIDE
     Route: 065
  5. KIPRES [Concomitant]
     Active Substance: MONTELUKAST SODIUM
     Route: 048
  6. ADOAIR [Concomitant]
     Active Substance: FLUTICASONE PROPIONATE\SALMETEROL XINAFOATE
     Route: 065

REACTIONS (1)
  - Oral mucosal exfoliation [Not Recovered/Not Resolved]

NARRATIVE: CASE EVENT DATE: 201806
